FAERS Safety Report 15256467 (Version 1)
Quarter: 2018Q3

REPORT INFORMATION
  Report Type: Spontaneous
  Country: US (occurrence: US)
  Receive Date: 20180808
  Receipt Date: 20180808
  Transmission Date: 20181010
  Serious: No
  Sender: FDA-Public Use
  Company Number: US-GLAXOSMITHKLINE-US2018139453

PATIENT
  Sex: Female

DRUGS (1)
  1. BREO ELLIPTA [Suspect]
     Active Substance: FLUTICASONE FUROATE\VILANTEROL TRIFENATATE
     Indication: PRODUCT USED FOR UNKNOWN INDICATION
     Dosage: UNK
     Dates: start: 201609

REACTIONS (7)
  - Cough [Unknown]
  - Dry mouth [Unknown]
  - Dysphonia [Unknown]
  - Throat clearing [Unknown]
  - Dry throat [Unknown]
  - Throat irritation [Unknown]
  - Irritability [Unknown]
